FAERS Safety Report 7462513-8 (Version None)
Quarter: 2011Q2

REPORT INFORMATION
  Report Type: 
  Country: None (occurrence: None)
  Receive Date: 20110506
  Receipt Date: 20110324
  Transmission Date: 20111010
  Serious: Yes (Hospitalization, Other)
  Sender: FDA-Public Use
  Company Number: US-BAYER-201042083NA

PATIENT
  Age: 42 Year
  Sex: Female
  Weight: 102 kg

DRUGS (6)
  1. YAZ [Suspect]
     Indication: PREMENSTRUAL SYNDROME
  2. YAZ [Suspect]
     Indication: CONTRACEPTION
     Dosage: QD
     Route: 048
     Dates: start: 20080621, end: 20081107
  3. NSAID'S [Concomitant]
     Dosage: UNK
     Dates: start: 20010101, end: 20100101
  4. YAZ [Suspect]
     Indication: ACNE
  5. ANTACIDS [Concomitant]
  6. GAS-X [Concomitant]

REACTIONS (6)
  - CHOLECYSTITIS CHRONIC [None]
  - GALLBLADDER CHOLESTEROLOSIS [None]
  - ABDOMINAL PAIN [None]
  - CHOLELITHIASIS [None]
  - CHOLECYSTECTOMY [None]
  - BILE DUCT STONE [None]
